FAERS Safety Report 23775386 (Version 1)
Quarter: 2024Q2

REPORT INFORMATION
  Report Type: Spontaneous
  Country: CA (occurrence: CA)
  Receive Date: 20240423
  Receipt Date: 20240423
  Transmission Date: 20240716
  Serious: Yes (Other)
  Sender: FDA-Public Use
  Company Number: CA-TEVA-VS-3187730

PATIENT
  Age: 8 Year
  Sex: Male
  Weight: 23 kg

DRUGS (1)
  1. METHOTREXATE [Suspect]
     Active Substance: METHOTREXATE
     Indication: Juvenile idiopathic arthritis
     Route: 058

REACTIONS (3)
  - Condition aggravated [Unknown]
  - Off label use [Unknown]
  - Off label use [Unknown]
